FAERS Safety Report 7477121-2 (Version None)
Quarter: 2011Q2

REPORT INFORMATION
  Report Type: 
  Country: None (occurrence: None)
  Receive Date: 20110512
  Receipt Date: 20110125
  Transmission Date: 20111010
  Serious: No
  Sender: FDA-Public Use
  Company Number: US-NOVEN-11US001658

PATIENT
  Age: 45 Year
  Sex: Female
  Weight: 81.179 kg

DRUGS (2)
  1. ANTIBIOTICS [Concomitant]
     Indication: INFECTION
     Route: 048
  2. DAYTRANA [Suspect]
     Indication: ATTENTION DEFICIT/HYPERACTIVITY DISORDER
     Dosage: 15 G, QD
     Route: 062
     Dates: start: 20110106

REACTIONS (3)
  - LIBIDO INCREASED [None]
  - OFF LABEL USE [None]
  - DRUG INEFFECTIVE [None]
